FAERS Safety Report 21314667 (Version 1)
Quarter: 2022Q3

REPORT INFORMATION
  Report Type: Spontaneous
  Country: US (occurrence: None)
  Receive Date: 20220909
  Receipt Date: 20220909
  Transmission Date: 20221026
  Serious: No
  Sender: FDA-Public Use
  Company Number: US-ARIS GLOBAL-202110-1904

PATIENT
  Sex: Female

DRUGS (8)
  1. OXERVATE [Suspect]
     Active Substance: CENEGERMIN-BKBJ
     Indication: Sjogren^s syndrome
     Route: 047
     Dates: start: 20211017
  2. RESTASIS [Concomitant]
     Active Substance: CYCLOSPORINE
  3. REFRESH CLASSIC [Concomitant]
     Active Substance: POLYVINYL ALCOHOL\POVIDONE
  4. ACETYLCHOLINE CHLORIDE [Concomitant]
     Active Substance: ACETYLCHOLINE CHLORIDE
  5. ZOCOR [Concomitant]
     Active Substance: SIMVASTATIN
  6. ARAVA [Concomitant]
     Active Substance: LEFLUNOMIDE
  7. PLAQUENIL [Concomitant]
     Active Substance: HYDROXYCHLOROQUINE SULFATE
  8. SIMPONI [Concomitant]
     Active Substance: GOLIMUMAB
     Dosage: PEN

REACTIONS (2)
  - Off label use [Unknown]
  - Eye pain [Unknown]
